FAERS Safety Report 8351483-6 (Version None)
Quarter: 2012Q2

REPORT INFORMATION
  Report Type: 
  Country: None (occurrence: None)
  Receive Date: 20120510
  Receipt Date: 20120426
  Transmission Date: 20120825
  Serious: Yes (Hospitalization, Other)
  Sender: FDA-Public Use
  Company Number: CHPA2012US010025

PATIENT
  Sex: Female

DRUGS (2)
  1. EXCEDRIN (MIGRAINE) [Suspect]
     Indication: PAIN
     Dosage: 2 DF, PRN
     Route: 048
  2. EXCEDRIN EXTRA STRENGTH TABLETS [Suspect]
     Indication: PAIN
     Dosage: 2 DF, PRN
     Route: 048

REACTIONS (17)
  - PNEUMONIA [None]
  - MALAISE [None]
  - BRONCHIAL INJURY [None]
  - INFLAMMATION [None]
  - CONTUSION [None]
  - DIARRHOEA HAEMORRHAGIC [None]
  - BLOOD CHOLESTEROL INCREASED [None]
  - DRY SKIN [None]
  - ASTHENIA [None]
  - HAEMOPTYSIS [None]
  - WEIGHT DECREASED [None]
  - COUGH [None]
  - PRURITUS [None]
  - SKIN EXFOLIATION [None]
  - TYPE 2 DIABETES MELLITUS [None]
  - PAIN [None]
  - DECREASED APPETITE [None]
